FAERS Safety Report 7524425-0 (Version None)
Quarter: 2011Q2

REPORT INFORMATION
  Report Type: 
  Country: None (occurrence: None)
  Receive Date: 20110606
  Receipt Date: 20110531
  Transmission Date: 20111010
  Serious: Yes (Death, Other)
  Sender: FDA-Public Use
  Company Number: PHHY2011JP44512

PATIENT
  Weight: 2 kg

DRUGS (1)
  1. DIOVAN [Suspect]
     Dosage: MATERNAL DOSE: 80 MG ONCE DAILY
     Route: 064

REACTIONS (10)
  - RIB DEFORMITY [None]
  - DRUG EXPOSURE DURING PREGNANCY [None]
  - MATERNAL DRUGS AFFECTING FOETUS [None]
  - RENAL FAILURE NEONATAL [None]
  - FOETAL GROWTH RESTRICTION [None]
  - NEONATAL RESPIRATORY FAILURE [None]
  - JOINT CONTRACTURE [None]
  - PULMONARY HYPOPLASIA [None]
  - CAESAREAN SECTION [None]
  - POTTER'S SYNDROME [None]
